FAERS Safety Report 11884688 (Version 1)
Quarter: 2016Q1

REPORT INFORMATION
  Report Type: Spontaneous
  Country: US (occurrence: US)
  Receive Date: 20160104
  Receipt Date: 20160104
  Transmission Date: 20160526
  Serious: Yes (Hospitalization, Other)
  Sender: FDA-Public Use
  Company Number: US-HOSPIRA-3122077

PATIENT
  Age: 9 Year
  Sex: Female

DRUGS (5)
  1. ETOPOSIDE. [Suspect]
     Active Substance: ETOPOSIDE
     Indication: LEUKAEMIA RECURRENT
     Dates: start: 201510, end: 20151209
  2. VINBLASTINE [Suspect]
     Active Substance: VINBLASTINE
     Indication: LEUKAEMIA RECURRENT
     Dosage: WEEKLY
     Dates: start: 201508, end: 201510
  3. CYTARABINE. [Suspect]
     Active Substance: CYTARABINE
     Indication: LEUKAEMIA RECURRENT
     Dates: start: 201510, end: 20151209
  4. ETOPOSIDE. [Suspect]
     Active Substance: ETOPOSIDE
     Indication: LEUKAEMIA RECURRENT
     Route: 048
     Dates: start: 201507, end: 201508
  5. BORTEZOMIB [Suspect]
     Active Substance: BORTEZOMIB
     Indication: LEUKAEMIA RECURRENT
     Dates: start: 201505

REACTIONS (10)
  - Disease progression [Unknown]
  - Bronchopulmonary aspergillosis [Unknown]
  - Vomiting [Unknown]
  - Malnutrition [Unknown]
  - Rash [Unknown]
  - Paresis [Unknown]
  - Bacillus infection [Recovering/Resolving]
  - Hypertension [Unknown]
  - Cough [Unknown]
  - Meningoencephalitis bacterial [Recovering/Resolving]

NARRATIVE: CASE EVENT DATE: 201505
